FAERS Safety Report 4530380-8 (Version None)
Quarter: 2004Q4

REPORT INFORMATION
  Report Type: 
  Country: None (occurrence: None)
  Receive Date: 20041215
  Receipt Date: 20041206
  Transmission Date: 20050328
  Serious: Yes (Hospitalization)
  Sender: FDA-Public Use
  Company Number: HQWYE777907DEC04

PATIENT
  Age: 35 Year
  Sex: Male

DRUGS (3)
  1. ADVIL [Suspect]
     Route: 048
     Dates: start: 20041029, end: 20041102
  2. ROFENID (KETOPROFEN, ) [Suspect]
     Indication: MIGRAINE
     Dates: start: 20041104
  3. RULID (ROXITHROMYCIN, ) [Suspect]
     Dates: start: 20041029, end: 20041102

REACTIONS (3)
  - ENCEPHALITIS [None]
  - MIGRAINE [None]
  - TREMOR [None]
